FAERS Safety Report 8141180-4 (Version None)
Quarter: 2012Q1

REPORT INFORMATION
  Report Type: 
  Country: None (occurrence: None)
  Receive Date: 20120103
  Receipt Date: 20110919
  Transmission Date: 20120608
  Serious: No
  Sender: FDA-Public Use
  Company Number: AE-2011-001677

PATIENT
  Age: 52 Year
  Sex: Female
  Weight: 87.9978 kg

DRUGS (7)
  1. PEGASYS [Concomitant]
  2. RIBAVIRIN [Concomitant]
  3. SEROQUEL [Concomitant]
  4. CLONOPIN (CLONOZEPAM) [Concomitant]
  5. INCIVEK [Suspect]
     Dosage: 2250 MG (750 MG, 3 IN 1 D), ORAL
     Route: 048
     Dates: start: 20110914
  6. LISINOPRIL [Concomitant]
  7. ZOLOFT [Concomitant]

REACTIONS (3)
  - ARTHRALGIA [None]
  - RASH [None]
  - PRURITUS [None]
